FAERS Safety Report 11226332 (Version 1)
Quarter: 2015Q2

REPORT INFORMATION
  Report Type: Spontaneous
  Country: US (occurrence: US)
  Receive Date: 20150629
  Receipt Date: 20150629
  Transmission Date: 20150821
  Serious: Yes (Other)
  Sender: FDA-Public Use
  Company Number: US-ABBVIE-15P-163-1415439-00

PATIENT
  Age: 22 Year
  Sex: Female

DRUGS (1)
  1. SYNTHROID [Suspect]
     Active Substance: LEVOTHYROXINE SODIUM
     Indication: THYROIDECTOMY
     Route: 065

REACTIONS (8)
  - Scar [Unknown]
  - Hypothyroidism [Unknown]
  - Neck pain [Unknown]
  - Dysphagia [Unknown]
  - Thyroid function test abnormal [Unknown]
  - Hyperthyroidism [Unknown]
  - Spinal disorder [Unknown]
  - Surgery [Unknown]
